FAERS Safety Report 7760843-3 (Version None)
Quarter: 2011Q3

REPORT INFORMATION
  Report Type: 
  Country: None (occurrence: None)
  Receive Date: 20110919
  Receipt Date: 20110915
  Transmission Date: 20111222
  Serious: Yes (Other)
  Sender: FDA-Public Use
  Company Number: GB-PFIZER INC-2011210431

PATIENT
  Age: 37 Year
  Sex: Female
  Weight: 156 kg

DRUGS (12)
  1. METFORMIN [Concomitant]
     Dosage: 1 G, 3X/DAY
  2. ATORVASTATIN [Concomitant]
     Dosage: 40 MG, UNK
  3. DULOXETINE [Concomitant]
     Dosage: 200 MG, UNK
  4. AMITRIPTYLINE [Concomitant]
     Dosage: 10 MG, UNK
  5. CODEINE PHOSPHATE [Concomitant]
     Dosage: UNK
  6. LISINOPRIL [Concomitant]
     Dosage: 20 MG, UNK
  7. VARENICLINE TARTRATE [Suspect]
     Indication: SMOKING CESSATION THERAPY
     Dosage: 1 MG, 2X/DAY
     Route: 048
     Dates: start: 20110728, end: 20110822
  8. BECLOMETHASONE DIPROPIONATE [Concomitant]
     Dosage: UNK
     Route: 055
  9. EXENATIDE [Concomitant]
     Dosage: UNK
  10. PARACETAMOL [Concomitant]
     Dosage: UNK
  11. PIOGLITAZONE [Concomitant]
     Dosage: 30 MG, UNK
  12. VENTOLIN HFA [Concomitant]
     Dosage: UNK
     Route: 055

REACTIONS (4)
  - SUICIDAL IDEATION [None]
  - AGITATION [None]
  - INSOMNIA [None]
  - WITHDRAWAL SYNDROME [None]
